FAERS Safety Report 5257981-6 (Version None)
Quarter: 2007Q1

REPORT INFORMATION
  Report Type: 
  Country: None (occurrence: None)
  Receive Date: 20070307
  Receipt Date: 20061127
  Transmission Date: 20070707
  Serious: No
  Sender: FDA-Public Use
  Company Number: US-GLAXOSMITHKLINE-A0628687A

PATIENT
  Age: 56 Year
  Sex: Female

DRUGS (5)
  1. REQUIP [Suspect]
     Indication: DRUG USE FOR UNKNOWN INDICATION
     Dosage: 1MG UNKNOWN
     Route: 048
  2. TRAZODONE HCL [Concomitant]
  3. BUPROPION HCL [Concomitant]
  4. GEODON [Concomitant]
  5. VALTREX [Concomitant]

REACTIONS (1)
  - FLUSHING [None]
